FAERS Safety Report 9119656 (Version 1)
Quarter: 2013Q1

REPORT INFORMATION
  Report Type: Spontaneous
  Country: US (occurrence: US)
  Receive Date: 20130207
  Receipt Date: 20130207
  Transmission Date: 20140127
  Serious: Yes (Life-Threatening, Other)
  Sender: FDA-Public Use
  Company Number: US-RB-049464-13

PATIENT
  Sex: Female

DRUGS (3)
  1. SUBOXONE TABLET [Suspect]
     Indication: DRUG DEPENDENCE
     Dosage: ONE TABLET ONE TIME; DOSING DETAILS UNKNOWN
     Route: 060
  2. SUBOXONE TABLET [Suspect]
     Indication: DRUG DEPENDENCE
     Dosage: ONE TABLET ONE TIME; DOSING DETAILS UNKNOWN
     Route: 060
  3. SUBOXONE TABLET [Suspect]
     Indication: DRUG DEPENDENCE
     Dosage: ONE TABLET ONE TIME; DOSING DETAILS UNKNOWN
     Route: 060

REACTIONS (4)
  - Respiratory arrest [Recovered/Resolved]
  - Cardiac arrest [Recovered/Resolved]
  - Convulsion [Recovered/Resolved]
  - Swollen tongue [Recovered/Resolved]
